FAERS Safety Report 6341111-3 (Version None)
Quarter: 2009Q3

REPORT INFORMATION
  Report Type: 
  Country: None (occurrence: None)
  Receive Date: 20090904
  Receipt Date: 20090828
  Transmission Date: 20100115
  Serious: Yes (Hospitalization)
  Sender: FDA-Public Use
  Company Number: DE-ROCHE-654282

PATIENT
  Age: 22 Year
  Sex: Female

DRUGS (1)
  1. LARIAM [Suspect]
     Indication: PROPHYLAXIS
     Route: 065
     Dates: start: 20090101

REACTIONS (1)
  - CONSTIPATION [None]
